FAERS Safety Report 13075641 (Version 1)
Quarter: 2016Q4

REPORT INFORMATION
  Report Type: Spontaneous
  Country: US (occurrence: US)
  Receive Date: 20161229
  Receipt Date: 20161229
  Transmission Date: 20170207
  Serious: Yes (Hospitalization)
  Sender: FDA-Public Use
  Company Number: None

PATIENT
  Age: 79 Year
  Sex: Male
  Weight: 114.7 kg

DRUGS (2)
  1. IBRUTINIB [Concomitant]
     Active Substance: IBRUTINIB
  2. GAZYVA [Suspect]
     Active Substance: OBINUTUZUMAB
     Indication: MANTLE CELL LYMPHOMA
     Dosage: ?          OTHER FREQUENCY:PER STUDY PROTOCOL;?
     Route: 041
     Dates: start: 20161129, end: 20161227

REACTIONS (8)
  - Swelling [None]
  - Erythema [None]
  - Mantle cell lymphoma [None]
  - Malignant neoplasm progression [None]
  - Infection [None]
  - Pain in extremity [None]
  - Condition aggravated [None]
  - Skin lesion [None]

NARRATIVE: CASE EVENT DATE: 20161227
